FAERS Safety Report 7060912-X (Version None)
Quarter: 2010Q4

REPORT INFORMATION
  Report Type: 
  Country: None (occurrence: None)
  Receive Date: 20101025
  Receipt Date: 20101021
  Transmission Date: 20110411
  Serious: Yes (Hospitalization)
  Sender: FDA-Public Use
  Company Number: US-BRISTOL-MYERS SQUIBB COMPANY-15347156

PATIENT
  Age: 62 Year
  Sex: Male
  Weight: 119 kg

DRUGS (3)
  1. CISPLATIN [Suspect]
     Indication: OESOPHAGEAL ADENOCARCINOMA
     Dosage: LAST DOSE ON 05OCT2010;DOSAGE:25MG/M2 ON DAYS 1,8,15,22,29,36.
     Route: 042
     Dates: start: 20100907
  2. TAXOL [Suspect]
     Indication: OESOPHAGEAL ADENOCARCINOMA
     Dosage: LAST DOSE: 05OCT2010;DOSAGE:50MG/M2 ON DAYS 1,8,15,22,29,36.
     Route: 042
     Dates: start: 20100907
  3. RADIATION THERAPY [Suspect]
     Indication: OESOPHAGEAL ADENOCARCINOMA
     Dosage: 1DF:3880GY(50.4GY AT 180 CGY/FX);EXTERNAL BEAM,3D, NO OF FRACTION:28,ELAPSED(D):38.
     Dates: start: 20100907, end: 20101004

REACTIONS (3)
  - ATRIAL FLUTTER [None]
  - DEHYDRATION [None]
  - NAUSEA [None]
